FAERS Safety Report 4589203-3 (Version None)
Quarter: 2005Q1

REPORT INFORMATION
  Report Type: 
  Country: None (occurrence: None)
  Receive Date: 20050223
  Receipt Date: 20050210
  Transmission Date: 20050727
  Serious: Yes (Other)
  Sender: FDA-Public Use
  Company Number: APCDSS2003000191

PATIENT
  Sex: Male
  Weight: 51 kg

DRUGS (12)
  1. REMICADE [Suspect]
     Route: 041
  2. REMICADE [Suspect]
     Route: 041
  3. REMICADE [Suspect]
     Route: 041
  4. REMICADE [Suspect]
     Route: 041
  5. REMICADE [Suspect]
     Route: 041
  6. REMICADE [Suspect]
     Route: 041
  7. REMICADE [Suspect]
     Indication: CROHN'S DISEASE
     Route: 041
  8. PREDNISOLONE [Suspect]
     Indication: CROHN'S DISEASE
     Route: 049
  9. AZATHIOPRINE [Suspect]
     Indication: CROHN'S DISEASE
     Route: 049
  10. OPIUM TINCTURE [Concomitant]
     Route: 065
  11. PENTASA [Concomitant]
     Route: 065
     Dates: start: 20020703
  12. IMURAN [Concomitant]
     Route: 065
     Dates: start: 20021227, end: 20030105

REACTIONS (4)
  - ALOPECIA [None]
  - MYALGIA [None]
  - OEDEMA [None]
  - SEPSIS [None]
